FAERS Safety Report 4970623-X (Version None)
Quarter: 2006Q2

REPORT INFORMATION
  Report Type: 
  Country: None (occurrence: None)
  Receive Date: 20060412
  Receipt Date: 20060328
  Transmission Date: 20061013
  Serious: Yes (Other)
  Sender: FDA-Public Use
  Company Number: AU-MERCK-0603AUS00220

PATIENT
  Sex: Male

DRUGS (4)
  1. ZOCOR [Suspect]
     Route: 048
     Dates: start: 19920101
  2. ZOCOR [Suspect]
     Route: 048
     Dates: start: 20050101
  3. ZOCOR [Suspect]
     Route: 048
  4. ZETIA [Concomitant]
     Route: 048
     Dates: start: 20030101

REACTIONS (4)
  - ACCIDENT [None]
  - FIBROMYALGIA [None]
  - MYOCARDIAL INFARCTION [None]
  - WHIPLASH INJURY [None]
